FAERS Safety Report 14550235 (Version 1)
Quarter: 2018Q1

REPORT INFORMATION
  Report Type: Report from Study
  Country: US (occurrence: US)
  Receive Date: 20180219
  Receipt Date: 20180219
  Transmission Date: 20180509
  Serious: No
  Sender: FDA-Public Use
  Company Number: US-ACADIA PHARMACEUTICALS INC.-ACA-2017-006276

PATIENT
  Sex: Female

DRUGS (4)
  1. CARBIDOPA/LEVODOPA [Suspect]
     Active Substance: CARBIDOPA\LEVODOPA
     Indication: PARKINSON^S DISEASE
  2. NUPLAZID [Suspect]
     Active Substance: PIMAVANSERIN TARTRATE
     Indication: PARKINSON^S DISEASE
     Dosage: UNK
  3. NUPLAZID [Suspect]
     Active Substance: PIMAVANSERIN TARTRATE
     Indication: HALLUCINATION
  4. NUPLAZID [Suspect]
     Active Substance: PIMAVANSERIN TARTRATE
     Indication: PARKINSON^S DISEASE PSYCHOSIS

REACTIONS (10)
  - Paranoia [Unknown]
  - Hallucination [Not Recovered/Not Resolved]
  - Asthenia [Unknown]
  - Urinary tract infection [Recovering/Resolving]
  - Drug ineffective [Unknown]
  - Parkinson^s disease [Unknown]
  - Anaemia [Unknown]
  - Dementia [Unknown]
  - Dyskinesia [Unknown]
  - Tremor [Unknown]
